FAERS Safety Report 17142733 (Version 1)
Quarter: 2019Q4

REPORT INFORMATION
  Report Type: Spontaneous
  Country: SE (occurrence: SE)
  Receive Date: 20191211
  Receipt Date: 20191211
  Transmission Date: 20200122
  Serious: Yes (Hospitalization)
  Sender: FDA-Public Use
  Company Number: SE-JNJFOC-20191205987

PATIENT
  Age: 28 Year
  Sex: Female
  Weight: 65.5 kg

DRUGS (6)
  1. RISPERDAL [Suspect]
     Active Substance: RISPERIDONE
     Indication: PRODUCT USED FOR UNKNOWN INDICATION
     Dosage: 6 ST A 2 MG
     Route: 048
     Dates: start: 20181005, end: 20181005
  2. SERTRALINE [Suspect]
     Active Substance: SERTRALINE HYDROCHLORIDE
     Indication: PRODUCT USED FOR UNKNOWN INDICATION
     Dosage: 4 ST A 100 MG
     Route: 048
     Dates: start: 20181005, end: 20181005
  3. THERALEN [Suspect]
     Active Substance: TRIMEPRAZINE
     Indication: PRODUCT USED FOR UNKNOWN INDICATION
     Dosage: 40 MG/ML
     Route: 065
     Dates: start: 20181005, end: 20181005
  4. ZOPICLONE [Suspect]
     Active Substance: ZOPICLONE
     Indication: PRODUCT USED FOR UNKNOWN INDICATION
     Dosage: 4 ST A 7.5 MG
     Route: 048
     Dates: start: 20181005, end: 20181005
  5. PROPAVAN [Suspect]
     Active Substance: PROPIOMAZINE
     Indication: PRODUCT USED FOR UNKNOWN INDICATION
     Dosage: 12 ST A 25 MG
     Route: 048
     Dates: start: 20181005, end: 20181005
  6. PANODIL [Suspect]
     Active Substance: ACETAMINOPHEN
     Indication: PRODUCT USED FOR UNKNOWN INDICATION
     Dosage: 18 ST, 137 MG/KG
     Route: 048
     Dates: start: 20181005, end: 20181005

REACTIONS (7)
  - Dysarthria [Unknown]
  - Intentional overdose [Unknown]
  - Akathisia [Unknown]
  - Fatigue [Unknown]
  - Tachycardia [Unknown]
  - Electrocardiogram QT prolonged [Unknown]
  - Intentional self-injury [Unknown]

NARRATIVE: CASE EVENT DATE: 20181005
